FAERS Safety Report 23038891 (Version 3)
Quarter: 2024Q4

REPORT INFORMATION
  Report Type: Spontaneous
  Country: US (occurrence: US)
  Receive Date: 20231006
  Receipt Date: 20241210
  Transmission Date: 20250115
  Serious: No
  Sender: PFIZER
  Company Number: US-PFIZER INC-PV202300164441

PATIENT
  Age: 82 Year
  Sex: Female
  Weight: 82.358 kg

DRUGS (2)
  1. IBRANCE [Suspect]
     Active Substance: PALBOCICLIB
     Indication: Breast cancer female
     Dosage: 100 MG, CYCLIC (DAILY ON DAYS 1- 21 OF EACH 28 DAY CYCLE)
     Route: 048
     Dates: start: 202103
  2. ANASTROZOLE [Concomitant]
     Active Substance: ANASTROZOLE
     Dosage: UNK
     Dates: start: 202103

REACTIONS (2)
  - COVID-19 [Unknown]
  - Dyspnoea [Unknown]
